FAERS Safety Report 5638665-9 (Version None)
Quarter: 2008Q1

REPORT INFORMATION
  Report Type: 
  Country: None (occurrence: None)
  Receive Date: 20080226
  Receipt Date: 20070913
  Transmission Date: 20080703
  Serious: No
  Sender: FDA-Public Use
  Company Number: A0681851A

PATIENT
  Age: 71 Year
  Sex: Female

DRUGS (2)
  1. IMITREX [Suspect]
     Indication: MIGRAINE
     Dosage: 6MG PER DAY
     Route: 058
  2. IMITREX [Suspect]
     Route: 045

REACTIONS (1)
  - DRUG INEFFECTIVE [None]
